FAERS Safety Report 9391757 (Version 1)
Quarter: 2013Q3

REPORT INFORMATION
  Report Type: Spontaneous
  Country: IT (occurrence: IT)
  Receive Date: 20130709
  Receipt Date: 20130709
  Transmission Date: 20140515
  Serious: Yes (Other)
  Sender: FDA-Public Use
  Company Number: PHHY2013IT068822

PATIENT
  Age: 63 Year
  Sex: Male

DRUGS (2)
  1. CISPLATIN [Suspect]
     Indication: SQUAMOUS CELL CARCINOMA OF SKIN
     Dosage: 100 MG/M2, ON DAY 1, TOTAL 4 CYCLES
     Route: 040
  2. 5-FLUOROURACIL [Suspect]
     Indication: SQUAMOUS CELL CARCINOMA OF SKIN
     Dosage: 1000 MG/M2, FROM DAY TO DAY 4, 4 CYCLES

REACTIONS (7)
  - Squamous cell carcinoma of skin [Recovered/Resolved]
  - Metastases to pleura [Recovered/Resolved]
  - Metastases to lymph nodes [Recovered/Resolved]
  - Chest pain [Recovered/Resolved]
  - Dyspnoea [Recovered/Resolved]
  - Malignant neoplasm progression [Unknown]
  - Drug resistance [Unknown]
